APPROVED DRUG PRODUCT: FOLOTYN
Active Ingredient: PRALATREXATE
Strength: 20MG/ML (20MG/ML)
Dosage Form/Route: SOLUTION;INTRAVENOUS
Application: N022468 | Product #001 | TE Code: AP
Applicant: ACROTECH BIOPHARMA INC
Approved: Sep 24, 2009 | RLD: Yes | RS: No | Type: RX